FAERS Safety Report 8092903-4 (Version None)
Quarter: 2012Q1

REPORT INFORMATION
  Report Type: 
  Country: None (occurrence: None)
  Receive Date: 20120128
  Receipt Date: 20110804
  Transmission Date: 20120608
  Serious: No
  Sender: FDA-Public Use
  Company Number: US-ABBOTT-11P-163-0844215-00

PATIENT
  Age: 74 Year
  Sex: Male

DRUGS (10)
  1. CADUET [Concomitant]
     Indication: HYPERTENSION
     Dosage: 5/20MG DAILY
  2. PRILOSEC [Concomitant]
     Indication: GASTROOESOPHAGEAL REFLUX DISEASE
     Dosage: DAILY
  3. CYMBALTA [Concomitant]
     Indication: DEPRESSION
     Dosage: DAILY
  4. ASPIRIN [Concomitant]
     Indication: PRODUCT USED FOR UNKNOWN INDICATION
     Dosage: DAILY
  5. TOPROL-XL [Concomitant]
     Indication: HYPERTENSION
     Dosage: DAILY
  6. TRICOR [Concomitant]
     Indication: BLOOD CHOLESTEROL INCREASED
     Dosage: DAILY
  7. RESTASIS [Concomitant]
     Indication: DRY EYE
     Dosage: 1 GTT IN RIGHT EYE, DAILY
  8. HUMIRA [Suspect]
     Indication: CROHN'S DISEASE
     Dates: start: 20110615
  9. ACTOS [Concomitant]
     Indication: TYPE 2 DIABETES MELLITUS
     Dosage: DAILY
  10. AMARYL [Concomitant]
     Indication: TYPE 2 DIABETES MELLITUS
     Dosage: DAILY

REACTIONS (1)
  - INJECTION SITE REACTION [None]
